FAERS Safety Report 4909297-2 (Version None)
Quarter: 2006Q1

REPORT INFORMATION
  Report Type: 
  Country: None (occurrence: None)
  Receive Date: 20060210
  Receipt Date: 20060210
  Transmission Date: 20060701
  Serious: Yes (Life-Threatening, Hospitalization)
  Sender: FDA-Public Use
  Company Number: None

PATIENT
  Age: 79 Year
  Sex: Male
  Weight: 81.6 kg

DRUGS (1)
  1. WARFARIN SODIUM [Suspect]
     Dosage: 2 MG TAB

REACTIONS (1)
  - HYPERCOAGULATION [None]
